FAERS Safety Report 4440619-5 (Version None)
Quarter: 2004Q3

REPORT INFORMATION
  Report Type: 
  Country: None (occurrence: None)
  Receive Date: 20040901
  Receipt Date: 20040901
  Transmission Date: 20050211
  Serious: Yes (Hospitalization)
  Sender: FDA-Public Use
  Company Number: None

PATIENT
  Sex: Female
  Weight: 65.7716 kg

DRUGS (10)
  1. COUMADIN [Suspect]
     Dosage: 5 MG PO QD [PRIOR TO ADMISSION]
     Route: 048
  2. IMDUR [Concomitant]
  3. NORVASC [Concomitant]
  4. ALTACE [Concomitant]
  5. PROTONIX [Concomitant]
  6. LASIX [Concomitant]
  7. KCL TAB [Concomitant]
  8. ZOCOR [Concomitant]
  9. LOPRESSOR [Concomitant]
  10. EPOGEN [Concomitant]

REACTIONS (1)
  - COAGULOPATHY [None]
